FAERS Safety Report 24709120 (Version 1)
Quarter: 2024Q4

REPORT INFORMATION
  Report Type: Spontaneous
  Country: CN (occurrence: CN)
  Receive Date: 20241208
  Receipt Date: 20241208
  Transmission Date: 20250114
  Serious: Yes (Other)
  Sender: ALEXION PHARMACEUTICALS
  Company Number: CN-AstraZeneca-CH-00757731A

PATIENT
  Age: 56 Year

DRUGS (8)
  1. TAGRISSO [Suspect]
     Active Substance: OSIMERTINIB
     Indication: Non-small cell lung cancer
     Dosage: 80 MILLIGRAM, QD
  2. IRESSA [Suspect]
     Active Substance: GEFITINIB
     Indication: Non-small cell lung cancer
     Dosage: UNK
     Route: 065
  3. IRESSA [Suspect]
     Active Substance: GEFITINIB
     Dosage: UNK
     Route: 065
  4. PEMETREXED [Concomitant]
     Active Substance: PEMETREXED
     Dosage: 600 MILLIGRAM, QD
  5. PEMETREXED [Concomitant]
     Active Substance: PEMETREXED
     Dosage: 25 MILLIGRAM, TID
  6. PEMETREXED [Concomitant]
     Active Substance: PEMETREXED
     Dosage: 50 MILLIGRAM, TID
  7. CARBOPLATIN [Concomitant]
     Active Substance: CARBOPLATIN
     Dosage: 400 MILLIGRAM, QD
  8. BEVACIZUMAB [Concomitant]
     Active Substance: BEVACIZUMAB
     Dosage: 300 MILLIGRAM

REACTIONS (5)
  - Meningeal neoplasm [Unknown]
  - Malignant neoplasm progression [Unknown]
  - Oesophageal carcinoma [Unknown]
  - Metastases to meninges [Unknown]
  - Cervix neoplasm [Unknown]
